FAERS Safety Report 5697729-4 (Version None)
Quarter: 2008Q2

REPORT INFORMATION
  Report Type: 
  Country: None (occurrence: None)
  Receive Date: 20080408
  Receipt Date: 20080402
  Transmission Date: 20081010
  Serious: Yes (Hospitalization)
  Sender: FDA-Public Use
  Company Number: B0515310A

PATIENT
  Age: 30 Year
  Sex: Male

DRUGS (4)
  1. CLAMOXYL [Suspect]
     Indication: PULMONARY TUBERCULOSIS
     Dosage: 12G PER DAY
     Route: 042
     Dates: start: 20071208, end: 20071210
  2. MALOCIDE [Suspect]
     Dosage: 75MG PER DAY
     Route: 048
     Dates: start: 20071207, end: 20071209
  3. ADIAZINE [Suspect]
     Dosage: 1000MG FOUR TIMES PER DAY
     Route: 048
     Dates: start: 20071207, end: 20071210
  4. CLAFORAN [Suspect]
     Indication: DRUG USE FOR UNKNOWN INDICATION
     Dosage: 12G PER DAY
     Route: 042
     Dates: start: 20071208, end: 20071210

REACTIONS (1)
  - AGRANULOCYTOSIS [None]
